FAERS Safety Report 22203134 (Version 2)
Quarter: 2023Q2

REPORT INFORMATION
  Report Type: Spontaneous
  Country: US (occurrence: US)
  Receive Date: 20230412
  Receipt Date: 20230525
  Transmission Date: 20230722
  Serious: No
  Sender: FDA-Public Use
  Company Number: US-PFIZER INC-202300148984

PATIENT
  Age: 45 Year
  Sex: Female
  Weight: 65.306 kg

DRUGS (1)
  1. PAXLOVID [Suspect]
     Active Substance: NIRMATRELVIR\RITONAVIR
     Indication: COVID-19 treatment
     Dosage: [PF-07321332 300 MG]/[RITONAVIR 100 MG], 2X/DAY
     Route: 048
     Dates: start: 20220927, end: 20220929

REACTIONS (3)
  - Diarrhoea [Unknown]
  - Seasonal allergy [Unknown]
  - Condition aggravated [Unknown]
